FAERS Safety Report 7866487-7 (Version None)
Quarter: 2011Q4

REPORT INFORMATION
  Report Type: 
  Country: None (occurrence: None)
  Receive Date: 20111028
  Receipt Date: 20111026
  Transmission Date: 20120403
  Serious: No
  Sender: FDA-Public Use
  Company Number: US-PFIZER INC-2011261668

PATIENT
  Sex: Male
  Weight: 89.796 kg

DRUGS (2)
  1. IBUPROFEN (ADVIL) [Suspect]
     Indication: PAIN
     Dosage: 200 MG, AS NEEDED
     Dates: start: 20111001, end: 20111025
  2. DIGOXIN [Concomitant]
     Indication: HYPERTENSION
     Dosage: 0.25 MG, DAILY

REACTIONS (1)
  - JOINT SWELLING [None]
